FAERS Safety Report 15869309 (Version 4)
Quarter: 2019Q2

REPORT INFORMATION
  Report Type: Report from Study
  Country: US (occurrence: US)
  Receive Date: 20190125
  Receipt Date: 20190606
  Transmission Date: 20190711
  Serious: Yes (Death, Hospitalization)
  Sender: FDA-Public Use
  Company Number: US-ACTELION-A-NJ2019-185091

PATIENT
  Age: 57 Year
  Sex: Male
  Weight: 81.63 kg

DRUGS (3)
  1. TYVASO [Suspect]
     Active Substance: TREPROSTINIL
     Indication: PRODUCT USED FOR UNKNOWN INDICATION
     Route: 065
  2. ELIQUIS [Concomitant]
     Active Substance: APIXABAN
  3. OPSUMIT [Suspect]
     Active Substance: MACITENTAN
     Indication: PULMONARY HYPERTENSION
     Dosage: 10 MG, QD
     Route: 048

REACTIONS (6)
  - Malaise [Unknown]
  - Pneumonia [Unknown]
  - Cough [Unknown]
  - Productive cough [Unknown]
  - Wheezing [Unknown]
  - Death [Fatal]

NARRATIVE: CASE EVENT DATE: 20190511
